FAERS Safety Report 13236247 (Version 1)
Quarter: 2017Q1

REPORT INFORMATION
  Report Type: Spontaneous
  Country: US (occurrence: US)
  Receive Date: 20170215
  Receipt Date: 20170215
  Transmission Date: 20170428
  Serious: Yes (Other)
  Sender: FDA-Public Use
  Company Number: US-SA-2017SA025243

PATIENT
  Age: 73 Year
  Sex: Female

DRUGS (17)
  1. CARNITINE HYDROCHLORIDE [Concomitant]
  2. OXYBUTYNIN CHLORIDE. [Concomitant]
     Active Substance: OXYBUTYNIN CHLORIDE
  3. CORAL CALCIUM [Concomitant]
  4. PRALUENT [Suspect]
     Active Substance: ALIROCUMAB
     Indication: HYPERCHOLESTEROLAEMIA
     Route: 058
  5. COENZYME Q10 [Concomitant]
     Active Substance: UBIDECARENONE
  6. DOCOSAHEXANOIC ACID [Concomitant]
  7. FOLIC ACID. [Concomitant]
     Active Substance: FOLIC ACID
  8. BIOTIN [Concomitant]
     Active Substance: BIOTIN
  9. VALSARTAN. [Concomitant]
     Active Substance: VALSARTAN
  10. L-ARGININE [Concomitant]
     Active Substance: ARGININE
  11. LEVOCETIRIZINE HYDROCHLORIDE [Concomitant]
     Active Substance: LEVOCETIRIZINE HYDROCHLORIDE
  12. LIPITOR [Concomitant]
     Active Substance: ATORVASTATIN CALCIUM
  13. ALIROCUMAB PREFILLED PEN [Concomitant]
     Active Substance: ALIROCUMAB
     Indication: HYPERCHOLESTEROLAEMIA
  14. VITAMIN B12 [Concomitant]
     Active Substance: CYANOCOBALAMIN
  15. DELESTROGEN [Concomitant]
     Active Substance: ESTRADIOL VALERATE
  16. ESTRADIOL. [Concomitant]
     Active Substance: ESTRADIOL
  17. MAGNESIUM GLUCONATE [Concomitant]
     Active Substance: MAGNESIUM GLUCONATE

REACTIONS (1)
  - Lipoma [Unknown]
